FAERS Safety Report 11185984 (Version 14)
Quarter: 2022Q3

REPORT INFORMATION
  Report Type: Report from Study
  Country: CA (occurrence: CA)
  Receive Date: 20150612
  Receipt Date: 20220707
  Transmission Date: 20221027
  Serious: Yes (Hospitalization, Other)
  Sender: FDA-Public Use
  Company Number: PHHY2015CA066638

PATIENT
  Sex: Female

DRUGS (4)
  1. SANDOSTATIN LAR DEPOT [Suspect]
     Active Substance: OCTREOTIDE ACETATE
     Indication: Neuroendocrine tumour
     Dosage: 30 MG, Q4W
     Route: 030
     Dates: start: 20150501
  2. SANDOSTATIN LAR DEPOT [Suspect]
     Active Substance: OCTREOTIDE ACETATE
  3. SANDOSTATIN LAR DEPOT [Suspect]
     Active Substance: OCTREOTIDE ACETATE
  4. PERINDOPRIL [Concomitant]
     Active Substance: PERINDOPRIL
     Indication: Product used for unknown indication
     Dosage: UNK
     Route: 065

REACTIONS (24)
  - Joint injury [Recovering/Resolving]
  - Pain in extremity [Recovering/Resolving]
  - Post procedural infection [Recovering/Resolving]
  - Hepatic infection [Unknown]
  - Pyrexia [Unknown]
  - Disorientation [Unknown]
  - Malaise [Not Recovered/Not Resolved]
  - Liver abscess [Unknown]
  - Pneumonia [Not Recovered/Not Resolved]
  - Cough [Not Recovered/Not Resolved]
  - Body temperature increased [Unknown]
  - Crepitations [Unknown]
  - Synovial cyst [Recovering/Resolving]
  - Meniscus injury [Recovering/Resolving]
  - Blood pressure increased [Unknown]
  - Nervousness [Unknown]
  - Blood pressure systolic increased [Unknown]
  - Pain [Unknown]
  - Arthralgia [Unknown]
  - Dizziness [Unknown]
  - Asthenia [Unknown]
  - Bronchitis viral [Recovering/Resolving]
  - Product availability issue [Unknown]
  - Injection site haemorrhage [Unknown]

NARRATIVE: CASE EVENT DATE: 20150101
